FAERS Safety Report 5278285-1 (Version None)
Quarter: 2007Q1

REPORT INFORMATION
  Report Type: 
  Country: None (occurrence: None)
  Receive Date: 20070322
  Receipt Date: 20070313
  Transmission Date: 20070707
  Serious: Yes (Death, Other)
  Sender: FDA-Public Use
  Company Number: 163-20785-07030789

PATIENT

DRUGS (4)
  1. THALOMID [Suspect]
     Indication: BRAIN STEM GLIOMA
     Dosage: 12MG/KG, INCR. 20% WKLY. TO 24MG/KG OR 1000MG, ORAL
     Route: 048
  2. THALOMID [Suspect]
     Indication: GLIOBLASTOMA MULTIFORME
     Dosage: 12MG/KG, INCR. 20% WKLY. TO 24MG/KG OR 1000MG, ORAL
     Route: 048
  3. DEXAMETHASONE TAB [Concomitant]
  4. COUMADIN [Concomitant]

REACTIONS (17)
  - ABSCESS [None]
  - ASTROCYTOMA, LOW GRADE [None]
  - BRAIN STEM GLIOMA [None]
  - CONSTIPATION [None]
  - DEEP VEIN THROMBOSIS [None]
  - DISEASE PROGRESSION [None]
  - DRUG TOXICITY [None]
  - HAEMOGLOBIN DECREASED [None]
  - HYDROCEPHALUS [None]
  - HYPERSENSITIVITY [None]
  - LEUKOPENIA [None]
  - LIVER FUNCTION TEST ABNORMAL [None]
  - LYMPHOPENIA [None]
  - NEUROPATHY PERIPHERAL [None]
  - PULMONARY EMBOLISM [None]
  - RASH [None]
  - SHUNT INFECTION [None]
